FAERS Safety Report 9882829 (Version 2)
Quarter: 2014Q1

REPORT INFORMATION
  Report Type: Report from Study
  Country: ES (occurrence: ES)
  Receive Date: 20140207
  Receipt Date: 20140207
  Transmission Date: 20141002
  Serious: Yes (Death, Hospitalization)
  Sender: FDA-Public Use
  Company Number: US-ASTRAZENECA-2013SE90566

PATIENT
  Age: 0 Year
  Sex: Female
  Weight: 6.4 kg

DRUGS (2)
  1. SYNAGIS [Suspect]
     Dosage: 1ST DOSE
     Route: 030
     Dates: start: 20131017
  2. SYNAGIS [Suspect]
     Dosage: 2ND DOSE
     Route: 030
     Dates: start: 20131114

REACTIONS (2)
  - Death [Fatal]
  - Unevaluable event [Unknown]
